FAERS Safety Report 17799998 (Version 2)
Quarter: 2020Q2

REPORT INFORMATION
  Report Type: Spontaneous
  Country: US (occurrence: US)
  Receive Date: 20200518
  Receipt Date: 20200528
  Transmission Date: 20200714
  Serious: Yes (Other)
  Sender: FDA-Public Use
  Company Number: US-PFIZER INC-2018268667

PATIENT
  Age: 72 Year
  Sex: Female
  Weight: 86.17 kg

DRUGS (9)
  1. MICARDIS [Concomitant]
     Active Substance: TELMISARTAN
     Dosage: 20 MG, UNK
  2. GENOTROPIN MQ [Suspect]
     Active Substance: SOMATROPIN
     Indication: HYPOPITUITARISM
  3. CODEINE SULFATE. [Concomitant]
     Active Substance: CODEINE SULFATE
     Dosage: 30 MG, UNK
  4. LEVOFLOXACIN. [Concomitant]
     Active Substance: LEVOFLOXACIN
     Dosage: 250 MG, UNK
  5. AMOXICILLIN. [Concomitant]
     Active Substance: AMOXICILLIN
     Dosage: 250 MG, UNK
  6. GENOTROPIN MQ [Suspect]
     Active Substance: SOMATROPIN
     Indication: DWARFISM
     Dosage: 0.4 MG, DAILY
     Route: 058
  7. FLAGYL [Concomitant]
     Active Substance: METRONIDAZOLE\METRONIDAZOLE HYDROCHLORIDE
     Dosage: 250 MG, UNK
  8. ADVAIR DISKUS [Concomitant]
     Active Substance: FLUTICASONE PROPIONATE\SALMETEROL XINAFOATE
     Dosage: UNK (FLUTICASONE:100, SALMETEROL:50)
  9. NEXIUM [Concomitant]
     Active Substance: ESOMEPRAZOLE MAGNESIUM
     Dosage: 20 MG, UNK

REACTIONS (1)
  - Anaphylactic shock [Unknown]
